FAERS Safety Report 4804115-5 (Version None)
Quarter: 2005Q4

REPORT INFORMATION
  Report Type: 
  Country: None (occurrence: None)
  Receive Date: 20051014
  Receipt Date: 20050930
  Transmission Date: 20060501
  Serious: Yes (Other)
  Sender: FDA-Public Use
  Company Number: 2005-US-00413

PATIENT
  Sex: Female

DRUGS (2)
  1. QVAR 40 [Suspect]
     Indication: ASTHMA
     Dosage: UNK
  2. PREDNISONE TAB [Suspect]
     Dosage: UNK
     Route: 065

REACTIONS (4)
  - ABDOMINAL DISTENSION [None]
  - AGITATION [None]
  - GRAND MAL CONVULSION [None]
  - SWELLING FACE [None]
